FAERS Safety Report 10883160 (Version 1)
Quarter: 2015Q1

REPORT INFORMATION
  Report Type: Spontaneous
  Country: US (occurrence: None)
  Receive Date: 20150226
  Receipt Date: 20150226
  Transmission Date: 20150721
  Serious: Yes (Disabling, Other)
  Sender: FDA-Public Use
  Company Number: None

PATIENT
  Age: 16 Year
  Sex: Male
  Weight: 61.24 kg

DRUGS (2)
  1. VIT D SUPPLEMENTS [Concomitant]
  2. VICKS NYQUIL [Suspect]
     Active Substance: ACETAMINOPHEN\DEXTROMETHORPHAN HYDROBROMIDE\DOXYLAMINE SUCCINATE
     Indication: PULMONARY CONGESTION
     Dates: start: 20150210, end: 20150211

REACTIONS (4)
  - Dizziness [None]
  - Visual impairment [None]
  - Generalised tonic-clonic seizure [None]
  - Photopsia [None]

NARRATIVE: CASE EVENT DATE: 20150212
